FAERS Safety Report 23476243 (Version 1)
Quarter: 2024Q1

REPORT INFORMATION
  Report Type: Spontaneous
  Country: DE (occurrence: DE)
  Receive Date: 20240204
  Receipt Date: 20240204
  Transmission Date: 20240410
  Serious: No
  Sender: FDA-Public Use
  Company Number: DE-IPSEN Group, Research and Development-2023-08435

PATIENT
  Age: 63 Year
  Sex: Male
  Weight: 66 kg

DRUGS (3)
  1. CABOMETYX [Suspect]
     Active Substance: CABOZANTINIB S-MALATE
     Indication: Metastatic renal cell carcinoma
     Dosage: PAUSED CABOZANTINIB FOR 1 WEEK, THEN CONTINUED WITH 20MG
     Route: 065
     Dates: start: 20220505, end: 20221020
  2. CABOMETYX [Suspect]
     Active Substance: CABOZANTINIB S-MALATE
     Dosage: PAUSED CABOZANTINIB FOR 1 WEEK, THEN CONTINUED WITH 20MG
     Route: 065
  3. NIVOLUMAB [Suspect]
     Active Substance: NIVOLUMAB
     Indication: Metastatic renal cell carcinoma
     Dosage: 400 MG
     Route: 065
     Dates: start: 20220505, end: 20221020

REACTIONS (3)
  - Pruritus [Unknown]
  - Palmar-plantar erythrodysaesthesia syndrome [Recovered/Resolved]
  - Dysphonia [Unknown]

NARRATIVE: CASE EVENT DATE: 20220801
